FAERS Safety Report 4923923-3 (Version None)
Quarter: 2006Q1

REPORT INFORMATION
  Report Type: 
  Country: None (occurrence: None)
  Receive Date: 20060227
  Receipt Date: 20051006
  Transmission Date: 20060701
  Serious: Yes (Hospitalization)
  Sender: FDA-Public Use
  Company Number: US-MERCK-0510USA05770

PATIENT
  Age: 68 Year
  Sex: Female
  Weight: 80 kg

DRUGS (1)
  1. VIOXX [Suspect]
     Indication: ARTHRALGIA
     Route: 048
     Dates: start: 20010509, end: 20040702

REACTIONS (4)
  - ACUTE CORONARY SYNDROME [None]
  - HYPERTENSION [None]
  - INSOMNIA [None]
  - MYOCARDIAL INFARCTION [None]
